FAERS Safety Report 6055830-X (Version None)
Quarter: 2009Q1

REPORT INFORMATION
  Report Type: 
  Country: None (occurrence: None)
  Receive Date: 20090128
  Receipt Date: 20090115
  Transmission Date: 20090719
  Serious: Yes (Death)
  Sender: FDA-Public Use
  Company Number: JP-PFIZER INC-2008157037

PATIENT
  Age: 80 Year
  Sex: Female

DRUGS (10)
  1. DALACIN [Suspect]
     Indication: PNEUMONIA
     Dosage: 600 MG, 2X/DAY
     Route: 042
     Dates: start: 20080501, end: 20080101
  2. GLUCOSE W/ELECTROLYTES [Concomitant]
     Route: 042
  3. DAIMON [Concomitant]
     Route: 042
  4. CHARCOAL, ACTIVATED [Concomitant]
     Route: 048
  5. NORVASC [Concomitant]
     Route: 048
  6. ALLOPURINOL [Concomitant]
     Route: 048
  7. LANSOPRAZOLE [Concomitant]
     Route: 048
  8. FRANDOL [Concomitant]
     Route: 062
  9. LASIX [Concomitant]
     Route: 048
  10. WARFARIN [Concomitant]
     Route: 048

REACTIONS (3)
  - DISEASE PROGRESSION [None]
  - LIP SWELLING [None]
  - STOMATITIS [None]
